FAERS Safety Report 11710289 (Version 2)
Quarter: 2015Q4

REPORT INFORMATION
  Report Type: Spontaneous
  Country: US (occurrence: US)
  Receive Date: 20151104
  Receipt Date: 20151110
  Transmission Date: 20160304
  Serious: No
  Sender: FDA-Public Use
  Company Number: US-ELI_LILLY_AND_COMPANY-US201107002635

PATIENT
  Sex: Female

DRUGS (2)
  1. FORTEO [Suspect]
     Active Substance: TERIPARATIDE
     Dosage: 20 UG, QD
     Route: 065
     Dates: end: 20111016
  2. FORTEO [Suspect]
     Active Substance: TERIPARATIDE
     Indication: OSTEOPOROSIS
     Dosage: 20 UG, QD
     Route: 065
     Dates: start: 201103

REACTIONS (20)
  - Abdominal pain upper [Not Recovered/Not Resolved]
  - Pain in extremity [Not Recovered/Not Resolved]
  - Fear of disease [Unknown]
  - Pain [Unknown]
  - Drug dose omission [Unknown]
  - Asthenia [Recovering/Resolving]
  - Nausea [Unknown]
  - Vertigo [Unknown]
  - Muscle spasms [Unknown]
  - Feeling abnormal [Unknown]
  - Muscular weakness [Unknown]
  - Limb discomfort [Not Recovered/Not Resolved]
  - Decreased activity [Recovering/Resolving]
  - Dementia [Unknown]
  - Fall [Unknown]
  - Arthralgia [Unknown]
  - Abdominal discomfort [Not Recovered/Not Resolved]
  - Fatigue [Not Recovered/Not Resolved]
  - Depressed mood [Recovering/Resolving]
  - Dizziness [Unknown]

NARRATIVE: CASE EVENT DATE: 2011
